FAERS Safety Report 5046201-3 (Version None)
Quarter: 2006Q3

REPORT INFORMATION
  Report Type: 
  Country: None (occurrence: None)
  Receive Date: 20060710
  Receipt Date: 20060629
  Transmission Date: 20061208
  Serious: Yes (Other)
  Sender: FDA-Public Use
  Company Number: US-JNJFOC-20060606708

PATIENT
  Sex: Female

DRUGS (12)
  1. REMICADE [Suspect]
     Indication: RHEUMATOID ARTHRITIS
     Route: 042
  2. METHOTREXATE [Concomitant]
  3. PREDNISONE TAB [Concomitant]
  4. MULTI-VITAMIN [Concomitant]
  5. FOSAMAX [Concomitant]
  6. VICODIN [Concomitant]
  7. MORPHINE [Concomitant]
  8. FOLIC ACID [Concomitant]
  9. CYMBALTA [Concomitant]
  10. KLONAPIN [Concomitant]
  11. BENADRYL [Concomitant]
  12. ALBUTEROL SPIROS [Concomitant]

REACTIONS (1)
  - SQUAMOUS CELL CARCINOMA [None]
